FAERS Safety Report 9428018 (Version 1)
Quarter: 2013Q3

REPORT INFORMATION
  Report Type: Report from Study
  Country: US (occurrence: US)
  Receive Date: 20130730
  Receipt Date: 20130730
  Transmission Date: 20140515
  Serious: No
  Sender: FDA-Public Use
  Company Number: US-ABBOTT-12P-163-0971505-00

PATIENT
  Sex: Female
  Weight: 56.75 kg

DRUGS (2)
  1. NIASPAN (COATED) 1000MG [Suspect]
     Indication: BLOOD TRIGLYCERIDES INCREASED
     Dates: start: 2010
  2. PRAVASTATIN [Concomitant]
     Indication: PRODUCT USED FOR UNKNOWN INDICATION

REACTIONS (3)
  - Therapeutic response unexpected [Unknown]
  - Nail growth abnormal [Not Recovered/Not Resolved]
  - Nail disorder [Not Recovered/Not Resolved]
